FAERS Safety Report 5084852-0 (Version None)
Quarter: 2006Q3

REPORT INFORMATION
  Report Type: 
  Country: None (occurrence: None)
  Receive Date: 20060815
  Receipt Date: 20060803
  Transmission Date: 20061208
  Serious: Yes (Death, Hospitalization)
  Sender: FDA-Public Use
  Company Number: AZAKP200600276

PATIENT
  Age: 74 Year
  Sex: Female
  Weight: 46 kg

DRUGS (2)
  1. VIDAZA [Suspect]
     Indication: MYELODYSPLASTIC SYNDROME
     Dosage: 100 MG (DAILY X 7 DAYS), SUBCUTANEOUS
     Route: 058
     Dates: start: 20060222, end: 20060228
  2. FOSAMAX [Concomitant]

REACTIONS (8)
  - ASTHENIA [None]
  - DIARRHOEA [None]
  - EPISTAXIS [None]
  - FEBRILE NEUTROPENIA [None]
  - HYPONATRAEMIA [None]
  - MENINGITIS BACTERIAL [None]
  - PANCYTOPENIA [None]
  - PNEUMONIA [None]
